FAERS Safety Report 9614468 (Version 1)
Quarter: 2013Q4

REPORT INFORMATION
  Report Type: Spontaneous
  Country: US (occurrence: None)
  Receive Date: 20131009
  Receipt Date: 20131009
  Transmission Date: 20140711
  Serious: Yes (Hospitalization)
  Sender: FDA-Public Use
  Company Number: None

PATIENT
  Age: 42 Year
  Sex: Female
  Weight: 62.8 kg

DRUGS (2)
  1. NORETHINDRONE ACETATE FE [Suspect]
     Indication: CONTRACEPTION
     Dosage: 1 PILL QD ORAL
     Route: 048
  2. MOTRIN [Concomitant]

REACTIONS (2)
  - Deep vein thrombosis [None]
  - Pulmonary embolism [None]
